FAERS Safety Report 4308000-7 (Version None)
Quarter: 2004Q1

REPORT INFORMATION
  Report Type: 
  Country: None (occurrence: None)
  Receive Date: 20040301
  Receipt Date: 20030307
  Transmission Date: 20041129
  Serious: No
  Sender: FDA-Public Use
  Company Number: US-BRISTOL-MYERS SQUIBB COMPANY-12205779

PATIENT
  Age: 48 Year
  Sex: Female
  Weight: 91 kg

DRUGS (12)
  1. GLUCOPHAGE [Suspect]
     Indication: DIABETES MELLITUS
     Route: 048
  2. PRILOSEC [Concomitant]
  3. CELEBREX [Concomitant]
  4. AMARYL [Concomitant]
  5. TOPROL-XL [Concomitant]
  6. ZANTAC [Concomitant]
  7. PRINIVIL [Concomitant]
  8. NEURONTIN [Concomitant]
  9. LIPITOR [Concomitant]
  10. SEROQUEL [Concomitant]
  11. EFFEXOR [Concomitant]
  12. VITAMIN E [Concomitant]

REACTIONS (2)
  - DIARRHOEA [None]
  - NAUSEA [None]
